FAERS Safety Report 15657746 (Version 2)
Quarter: 2018Q4

REPORT INFORMATION
  Report Type: Spontaneous
  Country: DE (occurrence: DE)
  Receive Date: 20181126
  Receipt Date: 20181206
  Transmission Date: 20190205
  Serious: Yes (Hospitalization)
  Sender: FDA-Public Use
  Company Number: DE-CELGENEUS-DEU-20181104745

PATIENT
  Age: 73 Year
  Sex: Male
  Weight: 63.5 kg

DRUGS (4)
  1. CALCIUM/VITAMIN D [Concomitant]
     Active Substance: CALCIUM\VITAMIN D
     Indication: SUPPORTIVE CARE
     Dosage: 500 MG/400 IU
     Route: 065
  2. REVLIMID [Suspect]
     Active Substance: LENALIDOMIDE
     Indication: PLASMA CELL MYELOMA
     Dosage: 10 MILLIGRAM
     Route: 048
     Dates: start: 20130723
  3. REVLIMID [Suspect]
     Active Substance: LENALIDOMIDE
     Dosage: 15 MILLIGRAM
     Route: 048
     Dates: end: 20181027
  4. BONDRONAT [Concomitant]
     Active Substance: IBANDRONATE SODIUM
     Indication: SUPPORTIVE CARE
     Route: 065

REACTIONS (2)
  - Femur fracture [Recovered/Resolved]
  - Osteolysis [Unknown]

NARRATIVE: CASE EVENT DATE: 201312
